FAERS Safety Report 5979664-7 (Version None)
Quarter: 2008Q4

REPORT INFORMATION
  Report Type: 
  Country: None (occurrence: None)
  Receive Date: 20081204
  Receipt Date: 20081125
  Transmission Date: 20090506
  Serious: Yes (Hospitalization)
  Sender: FDA-Public Use
  Company Number: US-WATSON-2008-07015

PATIENT
  Sex: Male
  Weight: 96.145 kg

DRUGS (9)
  1. ALLOPURINOL (WATSON LABORATORIES) [Suspect]
     Indication: GOUT
     Dosage: 300 MG, DAILY
     Route: 048
     Dates: start: 20080408, end: 20080503
  2. PRANDIN                            /00882701/ [Concomitant]
     Indication: DIABETES MELLITUS
     Dosage: UNK
     Route: 065
  3. ACTOPLUS MET [Concomitant]
     Indication: DIABETES MELLITUS
     Dosage: UNK
     Route: 065
  4. SERTRALINE [Concomitant]
     Indication: DEPRESSION
     Dosage: UNK
     Route: 065
  5. INSPRA                             /01613601/ [Concomitant]
     Indication: DRUG USE FOR UNKNOWN INDICATION
     Dosage: UNK
     Route: 065
  6. FLOMAX [Concomitant]
     Indication: BENIGN PROSTATIC HYPERPLASIA
     Dosage: UNK
     Route: 065
  7. PROVIGIL [Concomitant]
     Indication: DRUG USE FOR UNKNOWN INDICATION
     Dosage: UNK
     Route: 065
  8. COREG [Concomitant]
     Indication: CARDIAC DISORDER
     Dosage: UNK
     Route: 065
  9. COREG [Concomitant]
     Indication: BENIGN PROSTATIC HYPERPLASIA

REACTIONS (10)
  - ASTHENIA [None]
  - GAIT DISTURBANCE [None]
  - MYOSITIS [None]
  - PNEUMONIA [None]
  - RENAL FAILURE ACUTE [None]
  - RESPIRATORY FAILURE [None]
  - SEPSIS [None]
  - STEVENS-JOHNSON SYNDROME [None]
  - TOXIC EPIDERMAL NECROLYSIS [None]
  - URINARY TRACT INFECTION [None]
